FAERS Safety Report 5358372-X (Version None)
Quarter: 2007Q2

REPORT INFORMATION
  Report Type: 
  Country: None (occurrence: None)
  Receive Date: 20070613
  Receipt Date: 20070613
  Transmission Date: 20071010
  Serious: Yes (Hospitalization)
  Sender: FDA-Public Use
  Company Number: None

PATIENT
  Sex: Male
  Weight: 117 kg

DRUGS (3)
  1. MYLOTARG [Suspect]
     Dosage: 13.8 MG
  2. CYTARABINE [Suspect]
     Dosage: 1610 MG
  3. DAUNORUBICIN HCL [Suspect]
     Dosage: 312 MG

REACTIONS (7)
  - ACTIVATED PARTIAL THROMBOPLASTIN TIME PROLONGED [None]
  - COAGULOPATHY [None]
  - FIBRIN D DIMER INCREASED [None]
  - LIVER TENDERNESS [None]
  - PROTHROMBIN TIME PROLONGED [None]
  - THROMBOCYTOPENIA [None]
  - VENOOCCLUSIVE LIVER DISEASE [None]
